FAERS Safety Report 20444505 (Version 1)
Quarter: 2022Q1

REPORT INFORMATION
  Report Type: Spontaneous
  Country: CA (occurrence: None)
  Receive Date: 20220208
  Receipt Date: 20220208
  Transmission Date: 20220424
  Serious: Yes (Death, Hospitalization)
  Sender: FDA-Public Use
  Company Number: CA-ROCHE-3014402

PATIENT
  Age: 66 Year
  Sex: Male
  Weight: 104 kg

DRUGS (3)
  1. BEVACIZUMAB [Suspect]
     Active Substance: BEVACIZUMAB
     Indication: Glioblastoma
     Route: 042
  2. LOMUSTINE [Concomitant]
     Active Substance: LOMUSTINE
  3. DEXAMETHASONE [Concomitant]
     Active Substance: DEXAMETHASONE

REACTIONS (9)
  - Death [Fatal]
  - Erythema [Fatal]
  - Heart rate increased [Fatal]
  - Hypertension [Fatal]
  - Mobility decreased [Fatal]
  - Off label use [Fatal]
  - Peripheral swelling [Fatal]
  - Product dose omission issue [Fatal]
  - Pulmonary thrombosis [Fatal]
